FAERS Safety Report 23399829 (Version 1)
Quarter: 2024Q1

REPORT INFORMATION
  Report Type: Spontaneous
  Country: ES (occurrence: ES)
  Receive Date: 20240114
  Receipt Date: 20240114
  Transmission Date: 20240410
  Serious: Yes (Other)
  Sender: FDA-Public Use
  Company Number: ES-AEMPS-1471172

PATIENT
  Age: 2 Year
  Sex: Male
  Weight: 13 kg

DRUGS (1)
  1. MONTELUKAST [Suspect]
     Active Substance: MONTELUKAST SODIUM
     Indication: Childhood asthma
     Dosage: 4 MILLIGRAM, (4 MG A-CE)
     Route: 065
     Dates: start: 20231120, end: 20240103

REACTIONS (3)
  - Abnormal behaviour [Unknown]
  - Insomnia [Unknown]
  - Nightmare [Unknown]

NARRATIVE: CASE EVENT DATE: 20231120
